FAERS Safety Report 10192005 (Version 3)
Quarter: 2014Q2

REPORT INFORMATION
  Report Type: Report from Study
  Country: CA (occurrence: CA)
  Receive Date: 20140523
  Receipt Date: 20140530
  Transmission Date: 20141212
  Serious: Yes (Other)
  Sender: FDA-Public Use
  Company Number: CA-JNJFOC-20120701240

PATIENT
  Sex: Female
  Weight: 65 kg

DRUGS (6)
  1. REMICADE [Suspect]
     Indication: CROHN^S DISEASE
     Route: 042
     Dates: start: 2009
  2. REMICADE [Suspect]
     Indication: CROHN^S DISEASE
     Route: 042
  3. REMICADE [Suspect]
     Indication: CROHN^S DISEASE
     Route: 042
     Dates: start: 20090210
  4. IMURAN [Suspect]
     Indication: CROHN^S DISEASE
     Route: 048
     Dates: start: 2009
  5. CALCIUM [Concomitant]
     Indication: CROHN^S DISEASE
     Route: 048
  6. VITAMIN D [Concomitant]
     Indication: CROHN^S DISEASE
     Route: 065

REACTIONS (3)
  - Pre-eclampsia [Unknown]
  - Exposure during pregnancy [Recovered/Resolved]
  - Adverse event [Unknown]
